FAERS Safety Report 7366041-X (Version None)
Quarter: 2011Q1

REPORT INFORMATION
  Report Type: 
  Country: None (occurrence: None)
  Receive Date: 20110322
  Receipt Date: 20110308
  Transmission Date: 20110831
  Serious: Yes (Hospitalization)
  Sender: FDA-Public Use
  Company Number: US-JNJFOC-20070101105

PATIENT
  Sex: Female

DRUGS (6)
  1. CIPROFLOXACIN [Concomitant]
  2. INFLIXIMAB [Suspect]
     Indication: CROHN'S DISEASE
     Route: 042
  3. INFLIXIMAB [Suspect]
     Route: 042
  4. INFLIXIMAB [Suspect]
     Dosage: TOTAL 27 DOSES
     Route: 042
  5. METRONIDAZOLE [Concomitant]
  6. METHOTREXATE [Concomitant]

REACTIONS (2)
  - CROHN'S DISEASE [None]
  - ANAL ABSCESS [None]
